FAERS Safety Report 23333834 (Version 32)
Quarter: 2025Q1

REPORT INFORMATION
  Report Type: Spontaneous
  Country: CA (occurrence: CA)
  Receive Date: 20231223
  Receipt Date: 20250321
  Transmission Date: 20250409
  Serious: Yes (Death, Life-Threatening, Hospitalization, Disabling, Congenital Anomaly, Other)
  Sender: CELLTRION
  Company Number: CA-CELLTRION INC.-2023CA024546

PATIENT

DRUGS (747)
  1. INFLIXIMAB [Suspect]
     Active Substance: INFLIXIMAB
     Indication: Rheumatoid arthritis
     Route: 042
  2. INFLIXIMAB [Suspect]
     Active Substance: INFLIXIMAB
  3. INFLIXIMAB [Suspect]
     Active Substance: INFLIXIMAB
  4. INFLIXIMAB [Suspect]
     Active Substance: INFLIXIMAB
     Route: 042
  5. INFLIXIMAB [Suspect]
     Active Substance: INFLIXIMAB
     Route: 065
  6. INFLIXIMAB [Suspect]
     Active Substance: INFLIXIMAB
     Route: 042
  7. INFLIXIMAB [Suspect]
     Active Substance: INFLIXIMAB
     Route: 042
  8. INFLIXIMAB [Suspect]
     Active Substance: INFLIXIMAB
     Route: 065
  9. ENBREL [Suspect]
     Active Substance: ETANERCEPT
     Indication: Rheumatoid arthritis
     Dosage: 50 MILLIGRAM, QWK
     Route: 058
  10. ENBREL [Suspect]
     Active Substance: ETANERCEPT
     Indication: Psoriatic arthropathy
  11. ENBREL [Suspect]
     Active Substance: ETANERCEPT
     Dosage: 1 DF, WEEKLY
  12. ENBREL [Suspect]
     Active Substance: ETANERCEPT
     Route: 048
  13. ENBREL [Suspect]
     Active Substance: ETANERCEPT
  14. ENBREL [Suspect]
     Active Substance: ETANERCEPT
     Dosage: 50 MG, WEEKLY
     Route: 058
  15. ENBREL [Suspect]
     Active Substance: ETANERCEPT
  16. ENBREL [Suspect]
     Active Substance: ETANERCEPT
     Dosage: 50 MG, WEEKLY
     Route: 058
  17. ENBREL [Suspect]
     Active Substance: ETANERCEPT
  18. ENBREL [Suspect]
     Active Substance: ETANERCEPT
  19. ENBREL [Suspect]
     Active Substance: ETANERCEPT
  20. ENBREL [Suspect]
     Active Substance: ETANERCEPT
     Dosage: 50 MG, WEEKLY
     Route: 058
  21. ENBREL [Suspect]
     Active Substance: ETANERCEPT
  22. ENBREL [Suspect]
     Active Substance: ETANERCEPT
     Dosage: 50 MG, WEEKLY
     Route: 058
  23. ENBREL [Suspect]
     Active Substance: ETANERCEPT
     Route: 058
  24. ENBREL [Suspect]
     Active Substance: ETANERCEPT
     Route: 058
  25. ENBREL [Suspect]
     Active Substance: ETANERCEPT
     Route: 058
  26. ENBREL [Suspect]
     Active Substance: ETANERCEPT
     Dosage: 20 MG, WEEKLY
     Route: 058
  27. ENBREL [Suspect]
     Active Substance: ETANERCEPT
     Route: 058
  28. ENBREL [Suspect]
     Active Substance: ETANERCEPT
     Route: 058
  29. ENBREL [Suspect]
     Active Substance: ETANERCEPT
  30. ENBREL [Suspect]
     Active Substance: ETANERCEPT
     Route: 058
  31. ENBREL [Suspect]
     Active Substance: ETANERCEPT
     Dosage: 50 MG, WEEKLY
  32. ENBREL [Suspect]
     Active Substance: ETANERCEPT
     Dosage: 20 MG, WEEKLY
  33. ENBREL [Suspect]
     Active Substance: ETANERCEPT
     Route: 058
  34. ENBREL [Suspect]
     Active Substance: ETANERCEPT
     Route: 058
  35. ENBREL [Suspect]
     Active Substance: ETANERCEPT
     Route: 048
  36. ENBREL [Suspect]
     Active Substance: ETANERCEPT
     Route: 065
  37. ENBREL [Suspect]
     Active Substance: ETANERCEPT
     Route: 058
  38. ENBREL [Suspect]
     Active Substance: ETANERCEPT
     Route: 058
  39. ENBREL [Suspect]
     Active Substance: ETANERCEPT
     Route: 058
  40. ENBREL [Suspect]
     Active Substance: ETANERCEPT
     Route: 058
  41. ENBREL [Suspect]
     Active Substance: ETANERCEPT
     Route: 065
  42. ENBREL [Suspect]
     Active Substance: ETANERCEPT
     Route: 058
  43. ENBREL [Suspect]
     Active Substance: ETANERCEPT
     Dosage: 1 DOSAGE FORM, QWK
     Route: 065
  44. ENBREL [Suspect]
     Active Substance: ETANERCEPT
     Route: 065
  45. ENBREL [Suspect]
     Active Substance: ETANERCEPT
     Dosage: 20 MILLIGRAM, QWK
     Route: 065
  46. XELJANZ [Suspect]
     Active Substance: TOFACITINIB CITRATE
     Indication: Psoriatic arthropathy
  47. XELJANZ [Suspect]
     Active Substance: TOFACITINIB CITRATE
     Route: 048
  48. XELJANZ [Suspect]
     Active Substance: TOFACITINIB CITRATE
     Dosage: 5 MG, WEEKLY
     Route: 048
  49. XELJANZ [Suspect]
     Active Substance: TOFACITINIB CITRATE
  50. XELJANZ [Suspect]
     Active Substance: TOFACITINIB CITRATE
  51. XELJANZ [Suspect]
     Active Substance: TOFACITINIB CITRATE
  52. XELJANZ [Suspect]
     Active Substance: TOFACITINIB CITRATE
  53. XELJANZ [Suspect]
     Active Substance: TOFACITINIB CITRATE
     Route: 048
  54. XELJANZ [Suspect]
     Active Substance: TOFACITINIB CITRATE
  55. XELJANZ [Suspect]
     Active Substance: TOFACITINIB CITRATE
     Route: 048
  56. XELJANZ [Suspect]
     Active Substance: TOFACITINIB CITRATE
  57. XELJANZ [Suspect]
     Active Substance: TOFACITINIB CITRATE
     Dosage: 5 MG, WEEKLY
  58. XELJANZ [Suspect]
     Active Substance: TOFACITINIB CITRATE
  59. XELJANZ [Suspect]
     Active Substance: TOFACITINIB CITRATE
     Route: 048
  60. XELJANZ [Suspect]
     Active Substance: TOFACITINIB CITRATE
     Dosage: 5 MG, WEEKLY
     Route: 048
  61. XELJANZ [Suspect]
     Active Substance: TOFACITINIB CITRATE
  62. XELJANZ [Suspect]
     Active Substance: TOFACITINIB CITRATE
  63. XELJANZ [Suspect]
     Active Substance: TOFACITINIB CITRATE
  64. XELJANZ [Suspect]
     Active Substance: TOFACITINIB CITRATE
     Route: 048
  65. XELJANZ [Suspect]
     Active Substance: TOFACITINIB CITRATE
     Route: 048
  66. XELJANZ [Suspect]
     Active Substance: TOFACITINIB CITRATE
     Route: 048
  67. XELJANZ [Suspect]
     Active Substance: TOFACITINIB CITRATE
     Route: 048
  68. ADALIMUMAB [Suspect]
     Active Substance: ADALIMUMAB
     Indication: Psoriatic arthropathy
     Route: 058
  69. ADALIMUMAB [Suspect]
     Active Substance: ADALIMUMAB
     Indication: Rheumatoid arthritis
     Route: 065
  70. ADALIMUMAB [Suspect]
     Active Substance: ADALIMUMAB
     Route: 048
  71. ADALIMUMAB [Suspect]
     Active Substance: ADALIMUMAB
     Route: 058
  72. ADALIMUMAB [Suspect]
     Active Substance: ADALIMUMAB
  73. ADALIMUMAB [Suspect]
     Active Substance: ADALIMUMAB
     Route: 058
  74. ADALIMUMAB [Suspect]
     Active Substance: ADALIMUMAB
     Route: 042
  75. ADALIMUMAB [Suspect]
     Active Substance: ADALIMUMAB
     Route: 016
  76. ADALIMUMAB [Suspect]
     Active Substance: ADALIMUMAB
     Route: 058
  77. ADALIMUMAB [Suspect]
     Active Substance: ADALIMUMAB
     Route: 065
  78. BUPIVACAINE HYDROCHLORIDE [Suspect]
     Active Substance: BUPIVACAINE HYDROCHLORIDE
  79. ETHINYL ESTRADIOL\NORETHINDRONE ACETATE [Suspect]
     Active Substance: ETHINYL ESTRADIOL\NORETHINDRONE ACETATE
     Route: 048
  80. CELECOXIB [Suspect]
     Active Substance: CELECOXIB
     Indication: Arthritis
     Route: 048
  81. CELECOXIB [Suspect]
     Active Substance: CELECOXIB
     Indication: Rheumatoid arthritis
     Route: 048
  82. CELECOXIB [Suspect]
     Active Substance: CELECOXIB
     Route: 048
  83. CELECOXIB [Suspect]
     Active Substance: CELECOXIB
     Route: 048
  84. CELECOXIB [Suspect]
     Active Substance: CELECOXIB
     Route: 048
  85. CELECOXIB [Suspect]
     Active Substance: CELECOXIB
  86. CELECOXIB [Suspect]
     Active Substance: CELECOXIB
  87. CELECOXIB [Suspect]
     Active Substance: CELECOXIB
     Route: 048
  88. CELECOXIB [Suspect]
     Active Substance: CELECOXIB
     Route: 058
  89. CELECOXIB [Suspect]
     Active Substance: CELECOXIB
  90. CELECOXIB [Suspect]
     Active Substance: CELECOXIB
     Route: 048
  91. DOXYCYCLINE HYCLATE [Suspect]
     Active Substance: DOXYCYCLINE HYCLATE
  92. HYDROCORTISONE [Suspect]
     Active Substance: HYDROCORTISONE
     Indication: Rheumatoid arthritis
  93. HYDROCORTISONE [Suspect]
     Active Substance: HYDROCORTISONE
     Route: 048
  94. HYDROCORTISONE [Suspect]
     Active Substance: HYDROCORTISONE
     Route: 058
  95. HYDROCORTISONE [Suspect]
     Active Substance: HYDROCORTISONE
     Route: 061
  96. HYDROCORTISONE SODIUM SUCCINATE [Suspect]
     Active Substance: HYDROCORTISONE SODIUM SUCCINATE
     Indication: Rheumatoid arthritis
  97. METHOTREXATE SODIUM [Suspect]
     Active Substance: METHOTREXATE SODIUM
     Indication: Rheumatoid arthritis
  98. METHOTREXATE SODIUM [Suspect]
     Active Substance: METHOTREXATE SODIUM
     Dosage: 25 MG QW
     Route: 048
  99. METHOTREXATE SODIUM [Suspect]
     Active Substance: METHOTREXATE SODIUM
     Route: 058
  100. METHOTREXATE SODIUM [Suspect]
     Active Substance: METHOTREXATE SODIUM
     Route: 048
  101. METHOTREXATE SODIUM [Suspect]
     Active Substance: METHOTREXATE SODIUM
     Route: 048
  102. METHOTREXATE SODIUM [Suspect]
     Active Substance: METHOTREXATE SODIUM
     Route: 048
  103. METHOTREXATE SODIUM [Suspect]
     Active Substance: METHOTREXATE SODIUM
     Dosage: 25 MG, WEEKLY
     Route: 013
  104. METHOTREXATE SODIUM [Suspect]
     Active Substance: METHOTREXATE SODIUM
  105. METHOTREXATE SODIUM [Suspect]
     Active Substance: METHOTREXATE SODIUM
     Route: 048
  106. METHOTREXATE SODIUM [Suspect]
     Active Substance: METHOTREXATE SODIUM
     Dosage: 20 MG, WEEKLY
     Route: 048
  107. METHOTREXATE SODIUM [Suspect]
     Active Substance: METHOTREXATE SODIUM
     Route: 048
  108. METHOTREXATE SODIUM [Suspect]
     Active Substance: METHOTREXATE SODIUM
     Route: 058
  109. METHOTREXATE SODIUM [Suspect]
     Active Substance: METHOTREXATE SODIUM
     Route: 048
  110. METHOTREXATE SODIUM [Suspect]
     Active Substance: METHOTREXATE SODIUM
  111. METHOTREXATE SODIUM [Suspect]
     Active Substance: METHOTREXATE SODIUM
     Route: 048
  112. METHOTREXATE SODIUM [Suspect]
     Active Substance: METHOTREXATE SODIUM
     Route: 048
  113. METHOTREXATE SODIUM [Suspect]
     Active Substance: METHOTREXATE SODIUM
     Route: 048
  114. METHOTREXATE SODIUM [Suspect]
     Active Substance: METHOTREXATE SODIUM
  115. METHOTREXATE SODIUM [Suspect]
     Active Substance: METHOTREXATE SODIUM
  116. METHOTREXATE SODIUM [Suspect]
     Active Substance: METHOTREXATE SODIUM
     Route: 048
  117. METHOTREXATE SODIUM [Suspect]
     Active Substance: METHOTREXATE SODIUM
  118. METHOTREXATE SODIUM [Suspect]
     Active Substance: METHOTREXATE SODIUM
     Route: 048
  119. METHOTREXATE SODIUM [Suspect]
     Active Substance: METHOTREXATE SODIUM
     Route: 048
  120. METHOTREXATE SODIUM [Suspect]
     Active Substance: METHOTREXATE SODIUM
     Route: 013
  121. METHOTREXATE SODIUM [Suspect]
     Active Substance: METHOTREXATE SODIUM
  122. METHOTREXATE SODIUM [Suspect]
     Active Substance: METHOTREXATE SODIUM
     Dosage: 25 MG, WEEKLY
  123. METHOTREXATE SODIUM [Suspect]
     Active Substance: METHOTREXATE SODIUM
  124. METHOTREXATE SODIUM [Suspect]
     Active Substance: METHOTREXATE SODIUM
     Route: 048
  125. METHOTREXATE SODIUM [Suspect]
     Active Substance: METHOTREXATE SODIUM
     Route: 065
  126. METHOTREXATE SODIUM [Suspect]
     Active Substance: METHOTREXATE SODIUM
     Route: 048
  127. METHOTREXATE SODIUM [Suspect]
     Active Substance: METHOTREXATE SODIUM
     Route: 065
  128. METHOTREXATE SODIUM [Suspect]
     Active Substance: METHOTREXATE SODIUM
     Route: 065
  129. METHOTREXATE SODIUM [Suspect]
     Active Substance: METHOTREXATE SODIUM
     Route: 065
  130. METHOTREXATE SODIUM [Suspect]
     Active Substance: METHOTREXATE SODIUM
     Route: 048
  131. METHOTREXATE SODIUM [Suspect]
     Active Substance: METHOTREXATE SODIUM
     Route: 065
  132. METHOTREXATE SODIUM [Suspect]
     Active Substance: METHOTREXATE SODIUM
     Route: 048
  133. METHOTREXATE SODIUM [Suspect]
     Active Substance: METHOTREXATE SODIUM
     Route: 048
  134. METHOTREXATE SODIUM [Suspect]
     Active Substance: METHOTREXATE SODIUM
     Route: 048
  135. METHYLPREDNISOLONE SODIUM SUCCINATE [Suspect]
     Active Substance: METHYLPREDNISOLONE SODIUM SUCCINATE
  136. PREGABALIN [Suspect]
     Active Substance: PREGABALIN
  137. PANTOPRAZOLE [Suspect]
     Active Substance: PANTOPRAZOLE
  138. PANTOPRAZOLE [Suspect]
     Active Substance: PANTOPRAZOLE
  139. PANTOPRAZOLE [Suspect]
     Active Substance: PANTOPRAZOLE
  140. PANTOPRAZOLE [Suspect]
     Active Substance: PANTOPRAZOLE
  141. PANTOPRAZOLE [Suspect]
     Active Substance: PANTOPRAZOLE
  142. PANTOPRAZOLE [Suspect]
     Active Substance: PANTOPRAZOLE
  143. PANTOPRAZOLE [Suspect]
     Active Substance: PANTOPRAZOLE
  144. PANTOPRAZOLE [Suspect]
     Active Substance: PANTOPRAZOLE
  145. PANTOPRAZOLE [Suspect]
     Active Substance: PANTOPRAZOLE
  146. PHENYLEPHRINE HYDROCHLORIDE [Suspect]
     Active Substance: PHENYLEPHRINE HYDROCHLORIDE
     Indication: Rheumatoid arthritis
     Route: 065
  147. PHENYLEPHRINE HYDROCHLORIDE [Suspect]
     Active Substance: PHENYLEPHRINE HYDROCHLORIDE
     Route: 065
  148. PHENYLEPHRINE HYDROCHLORIDE [Suspect]
     Active Substance: PHENYLEPHRINE HYDROCHLORIDE
     Route: 065
  149. PHENYLEPHRINE HYDROCHLORIDE [Suspect]
     Active Substance: PHENYLEPHRINE HYDROCHLORIDE
     Route: 065
  150. PHENYLEPHRINE HYDROCHLORIDE [Suspect]
     Active Substance: PHENYLEPHRINE HYDROCHLORIDE
     Route: 042
  151. PHENYLEPHRINE HYDROCHLORIDE [Suspect]
     Active Substance: PHENYLEPHRINE HYDROCHLORIDE
     Route: 065
  152. PHENYLEPHRINE HYDROCHLORIDE [Suspect]
     Active Substance: PHENYLEPHRINE HYDROCHLORIDE
     Route: 065
  153. PHENYLEPHRINE HYDROCHLORIDE [Suspect]
     Active Substance: PHENYLEPHRINE HYDROCHLORIDE
     Route: 058
  154. SULFASALAZINE [Suspect]
     Active Substance: SULFASALAZINE
     Indication: Rheumatoid arthritis
     Route: 048
  155. SULFASALAZINE [Suspect]
     Active Substance: SULFASALAZINE
     Route: 048
  156. SULFASALAZINE [Suspect]
     Active Substance: SULFASALAZINE
  157. SULFASALAZINE [Suspect]
     Active Substance: SULFASALAZINE
  158. SULFASALAZINE [Suspect]
     Active Substance: SULFASALAZINE
  159. SULFASALAZINE [Suspect]
     Active Substance: SULFASALAZINE
  160. SULFASALAZINE [Suspect]
     Active Substance: SULFASALAZINE
  161. SULFASALAZINE [Suspect]
     Active Substance: SULFASALAZINE
     Route: 048
  162. SULFASALAZINE [Suspect]
     Active Substance: SULFASALAZINE
     Route: 048
  163. SULFASALAZINE [Suspect]
     Active Substance: SULFASALAZINE
  164. SULFASALAZINE [Suspect]
     Active Substance: SULFASALAZINE
     Route: 048
  165. SULFASALAZINE [Suspect]
     Active Substance: SULFASALAZINE
  166. SULFASALAZINE [Suspect]
     Active Substance: SULFASALAZINE
     Route: 048
  167. SULFASALAZINE [Suspect]
     Active Substance: SULFASALAZINE
     Route: 048
  168. SULFASALAZINE [Suspect]
     Active Substance: SULFASALAZINE
     Route: 048
  169. SULFASALAZINE [Suspect]
     Active Substance: SULFASALAZINE
     Route: 048
  170. SULFASALAZINE [Suspect]
     Active Substance: SULFASALAZINE
     Route: 016
  171. SULFASALAZINE [Suspect]
     Active Substance: SULFASALAZINE
  172. SULFASALAZINE [Suspect]
     Active Substance: SULFASALAZINE
     Route: 048
  173. SULFASALAZINE [Suspect]
     Active Substance: SULFASALAZINE
  174. SULFASALAZINE [Suspect]
     Active Substance: SULFASALAZINE
     Route: 048
  175. SULFASALAZINE [Suspect]
     Active Substance: SULFASALAZINE
     Route: 048
  176. SULFASALAZINE [Suspect]
     Active Substance: SULFASALAZINE
     Route: 058
  177. SULFASALAZINE [Suspect]
     Active Substance: SULFASALAZINE
  178. SULFASALAZINE [Suspect]
     Active Substance: SULFASALAZINE
     Route: 048
  179. SULFASALAZINE [Suspect]
     Active Substance: SULFASALAZINE
  180. SULFASALAZINE [Suspect]
     Active Substance: SULFASALAZINE
  181. SULFASALAZINE [Suspect]
     Active Substance: SULFASALAZINE
  182. SULFASALAZINE [Suspect]
     Active Substance: SULFASALAZINE
     Route: 048
  183. SULFASALAZINE [Suspect]
     Active Substance: SULFASALAZINE
     Route: 048
  184. SULFASALAZINE [Suspect]
     Active Substance: SULFASALAZINE
     Route: 048
  185. SULFASALAZINE [Suspect]
     Active Substance: SULFASALAZINE
     Route: 058
  186. SULFASALAZINE [Suspect]
     Active Substance: SULFASALAZINE
     Route: 058
  187. SULFASALAZINE [Suspect]
     Active Substance: SULFASALAZINE
     Route: 058
  188. SULFASALAZINE [Suspect]
     Active Substance: SULFASALAZINE
     Route: 058
  189. SULFASALAZINE [Suspect]
     Active Substance: SULFASALAZINE
     Route: 058
  190. SULFASALAZINE [Suspect]
     Active Substance: SULFASALAZINE
     Route: 058
  191. SULFASALAZINE [Suspect]
     Active Substance: SULFASALAZINE
  192. SULFASALAZINE [Suspect]
     Active Substance: SULFASALAZINE
     Route: 065
  193. SULFASALAZINE [Suspect]
     Active Substance: SULFASALAZINE
     Route: 048
  194. SULFASALAZINE [Suspect]
     Active Substance: SULFASALAZINE
     Route: 048
  195. SULFASALAZINE [Suspect]
     Active Substance: SULFASALAZINE
     Route: 048
  196. SULFASALAZINE [Suspect]
     Active Substance: SULFASALAZINE
     Route: 065
  197. SULFASALAZINE [Suspect]
     Active Substance: SULFASALAZINE
     Route: 048
  198. SULFASALAZINE [Suspect]
     Active Substance: SULFASALAZINE
     Route: 048
  199. SULFASALAZINE [Suspect]
     Active Substance: SULFASALAZINE
     Route: 048
  200. SULFASALAZINE [Suspect]
     Active Substance: SULFASALAZINE
     Route: 048
  201. SULFASALAZINE [Suspect]
     Active Substance: SULFASALAZINE
     Route: 048
  202. CALCIUM CHLORIDE [Suspect]
     Active Substance: CALCIUM CHLORIDE
  203. ACTEMRA [Suspect]
     Active Substance: TOCILIZUMAB
     Indication: Rheumatoid arthritis
     Route: 065
     Dates: start: 201511
  204. ACTEMRA [Suspect]
     Active Substance: TOCILIZUMAB
     Dosage: UNK, WEEKLY
     Route: 042
  205. ACTEMRA [Suspect]
     Active Substance: TOCILIZUMAB
     Route: 058
  206. ACTEMRA [Suspect]
     Active Substance: TOCILIZUMAB
     Route: 042
  207. ACTEMRA [Suspect]
     Active Substance: TOCILIZUMAB
     Route: 042
  208. ACTEMRA [Suspect]
     Active Substance: TOCILIZUMAB
     Dosage: 2912 MG, WEEKLY
     Route: 042
  209. ACTEMRA [Suspect]
     Active Substance: TOCILIZUMAB
     Route: 048
     Dates: start: 201511
  210. ACTEMRA [Suspect]
     Active Substance: TOCILIZUMAB
     Route: 048
  211. ACTEMRA [Suspect]
     Active Substance: TOCILIZUMAB
     Route: 058
  212. ACTEMRA [Suspect]
     Active Substance: TOCILIZUMAB
     Route: 042
  213. ACTEMRA [Suspect]
     Active Substance: TOCILIZUMAB
     Route: 058
  214. ACTEMRA [Suspect]
     Active Substance: TOCILIZUMAB
     Route: 042
  215. ACTEMRA [Suspect]
     Active Substance: TOCILIZUMAB
     Route: 016
  216. ACTEMRA [Suspect]
     Active Substance: TOCILIZUMAB
     Route: 061
  217. ACTEMRA [Suspect]
     Active Substance: TOCILIZUMAB
     Route: 016
  218. ACTEMRA [Suspect]
     Active Substance: TOCILIZUMAB
  219. ACTEMRA [Suspect]
     Active Substance: TOCILIZUMAB
  220. ACTEMRA [Suspect]
     Active Substance: TOCILIZUMAB
  221. ACTEMRA [Suspect]
     Active Substance: TOCILIZUMAB
     Route: 042
  222. ACTEMRA [Suspect]
     Active Substance: TOCILIZUMAB
     Route: 065
  223. ACTEMRA [Suspect]
     Active Substance: TOCILIZUMAB
     Route: 048
  224. ACTEMRA [Suspect]
     Active Substance: TOCILIZUMAB
     Route: 058
  225. ACTEMRA [Suspect]
     Active Substance: TOCILIZUMAB
     Route: 065
  226. ACTEMRA [Suspect]
     Active Substance: TOCILIZUMAB
     Route: 042
  227. ACTEMRA [Suspect]
     Active Substance: TOCILIZUMAB
     Route: 042
  228. ACTEMRA [Suspect]
     Active Substance: TOCILIZUMAB
     Route: 042
  229. ACTEMRA [Suspect]
     Active Substance: TOCILIZUMAB
  230. ACETAMINOPHEN [Suspect]
     Active Substance: ACETAMINOPHEN
     Route: 065
  231. ACETAMINOPHEN [Suspect]
     Active Substance: ACETAMINOPHEN
     Route: 065
  232. ACETAMINOPHEN [Suspect]
     Active Substance: ACETAMINOPHEN
  233. ACETAMINOPHEN [Suspect]
     Active Substance: ACETAMINOPHEN
  234. ACETAMINOPHEN [Suspect]
     Active Substance: ACETAMINOPHEN
  235. ACETAMINOPHEN [Suspect]
     Active Substance: ACETAMINOPHEN
  236. ACETAMINOPHEN\OXYCODONE HYDROCHLORIDE [Suspect]
     Active Substance: ACETAMINOPHEN\OXYCODONE HYDROCHLORIDE
     Route: 065
  237. ACETAMINOPHEN\OXYCODONE HYDROCHLORIDE [Suspect]
     Active Substance: ACETAMINOPHEN\OXYCODONE HYDROCHLORIDE
     Route: 065
  238. ACETAMINOPHEN\OXYCODONE HYDROCHLORIDE [Suspect]
     Active Substance: ACETAMINOPHEN\OXYCODONE HYDROCHLORIDE
     Route: 065
  239. AIMOVIG [Suspect]
     Active Substance: ERENUMAB-AOOE
     Indication: Rheumatoid arthritis
     Route: 065
  240. AIMOVIG [Suspect]
     Active Substance: ERENUMAB-AOOE
     Indication: Migraine
  241. ALENDRONATE SODIUM\CHOLECALCIFEROL [Suspect]
     Active Substance: ALENDRONATE SODIUM\CHOLECALCIFEROL
     Indication: Rheumatoid arthritis
  242. ALENDRONATE SODIUM\CHOLECALCIFEROL [Suspect]
     Active Substance: ALENDRONATE SODIUM\CHOLECALCIFEROL
  243. ALENDRONIC ACID [Suspect]
     Active Substance: ALENDRONIC ACID
     Indication: Rheumatoid arthritis
     Route: 048
  244. ALENDRONIC ACID [Suspect]
     Active Substance: ALENDRONIC ACID
     Route: 048
  245. ALENDRONIC ACID [Suspect]
     Active Substance: ALENDRONIC ACID
     Route: 048
  246. ALENDRONIC ACID [Suspect]
     Active Substance: ALENDRONIC ACID
     Route: 048
  247. ALENDRONIC ACID [Suspect]
     Active Substance: ALENDRONIC ACID
     Route: 048
  248. ALENDRONIC ACID [Suspect]
     Active Substance: ALENDRONIC ACID
     Route: 048
  249. ALENDRONIC ACID [Suspect]
     Active Substance: ALENDRONIC ACID
     Route: 048
  250. ALENDRONIC ACID [Suspect]
     Active Substance: ALENDRONIC ACID
     Route: 065
  251. ALENDRONIC ACID [Suspect]
     Active Substance: ALENDRONIC ACID
     Route: 065
  252. ACETAMINOPHEN [Suspect]
     Active Substance: ACETAMINOPHEN
  253. DICLOFENAC SODIUM [Suspect]
     Active Substance: DICLOFENAC SODIUM
  254. DICLOFENAC SODIUM [Suspect]
     Active Substance: DICLOFENAC SODIUM
     Route: 058
  255. HYDROXYCHLOROQUINE SULFATE [Suspect]
     Active Substance: HYDROXYCHLOROQUINE SULFATE
     Indication: Rheumatoid arthritis
  256. LEFLUNOMIDE [Suspect]
     Active Substance: LEFLUNOMIDE
     Indication: Rheumatoid arthritis
     Route: 048
  257. PREDNISONE [Suspect]
     Active Substance: PREDNISONE
     Indication: Condition aggravated
  258. PREDNISONE [Suspect]
     Active Substance: PREDNISONE
     Indication: Synovitis
     Route: 048
  259. PREDNISONE [Suspect]
     Active Substance: PREDNISONE
     Indication: Pemphigus
  260. PREDNISONE [Suspect]
     Active Substance: PREDNISONE
     Indication: Psoriatic arthropathy
  261. PREDNISONE [Suspect]
     Active Substance: PREDNISONE
     Indication: Rheumatoid arthritis
     Route: 048
  262. PREDNISONE [Suspect]
     Active Substance: PREDNISONE
  263. PREDNISONE [Suspect]
     Active Substance: PREDNISONE
     Route: 042
  264. PREDNISONE [Suspect]
     Active Substance: PREDNISONE
  265. PREDNISONE [Suspect]
     Active Substance: PREDNISONE
     Route: 016
  266. PREDNISONE [Suspect]
     Active Substance: PREDNISONE
  267. PREDNISONE [Suspect]
     Active Substance: PREDNISONE
     Route: 048
  268. PREDNISONE [Suspect]
     Active Substance: PREDNISONE
     Route: 042
  269. PREDNISONE [Suspect]
     Active Substance: PREDNISONE
     Route: 048
  270. PREDNISONE [Suspect]
     Active Substance: PREDNISONE
     Route: 048
  271. PREDNISONE [Suspect]
     Active Substance: PREDNISONE
  272. PREDNISONE [Suspect]
     Active Substance: PREDNISONE
     Route: 048
  273. PREDNISONE [Suspect]
     Active Substance: PREDNISONE
  274. PREDNISONE [Suspect]
     Active Substance: PREDNISONE
     Route: 048
  275. PREDNISONE [Suspect]
     Active Substance: PREDNISONE
  276. PREDNISONE [Suspect]
     Active Substance: PREDNISONE
     Route: 048
  277. PREDNISONE [Suspect]
     Active Substance: PREDNISONE
  278. PREDNISONE [Suspect]
     Active Substance: PREDNISONE
  279. PREDNISONE [Suspect]
     Active Substance: PREDNISONE
     Route: 065
  280. ARAVA [Suspect]
     Active Substance: LEFLUNOMIDE
     Indication: Rheumatoid arthritis
     Route: 048
  281. ARAVA [Suspect]
     Active Substance: LEFLUNOMIDE
  282. ARAVA [Suspect]
     Active Substance: LEFLUNOMIDE
     Route: 048
  283. ARAVA [Suspect]
     Active Substance: LEFLUNOMIDE
     Route: 048
  284. ARAVA [Suspect]
     Active Substance: LEFLUNOMIDE
     Route: 048
  285. ARAVA [Suspect]
     Active Substance: LEFLUNOMIDE
     Route: 005
  286. ARAVA [Suspect]
     Active Substance: LEFLUNOMIDE
     Route: 048
  287. ATOMOXETINE HYDROCHLORIDE [Suspect]
     Active Substance: ATOMOXETINE HYDROCHLORIDE
     Indication: Migraine
     Route: 065
  288. ATOMOXETINE HYDROCHLORIDE [Suspect]
     Active Substance: ATOMOXETINE HYDROCHLORIDE
     Route: 065
  289. ATOMOXETINE HYDROCHLORIDE [Suspect]
     Active Substance: ATOMOXETINE HYDROCHLORIDE
     Route: 065
  290. ATOMOXETINE HYDROCHLORIDE [Suspect]
     Active Substance: ATOMOXETINE HYDROCHLORIDE
     Route: 065
  291. BENZOCAINE [Suspect]
     Active Substance: BENZOCAINE
  292. BERINERT [Suspect]
     Active Substance: HUMAN C1-ESTERASE INHIBITOR
  293. BUTAMBEN [Suspect]
     Active Substance: BUTAMBEN
  294. BOTULINUM TOXIN TYPE A [Suspect]
     Active Substance: BOTULINUM TOXIN TYPE A
  295. MINERALS\VITAMINS [Suspect]
     Active Substance: MINERALS\VITAMINS
  296. MINERALS\VITAMINS [Suspect]
     Active Substance: MINERALS\VITAMINS
     Route: 016
  297. CANDESARTAN [Suspect]
     Active Substance: CANDESARTAN
     Indication: Migraine
     Route: 048
  298. CERTOLIZUMAB PEGOL [Suspect]
     Active Substance: CERTOLIZUMAB PEGOL
     Indication: Rheumatoid arthritis
     Route: 058
  299. CERTOLIZUMAB PEGOL [Suspect]
     Active Substance: CERTOLIZUMAB PEGOL
     Indication: Psoriasis
     Route: 058
  300. CERTOLIZUMAB PEGOL [Suspect]
     Active Substance: CERTOLIZUMAB PEGOL
     Route: 058
  301. CERTOLIZUMAB PEGOL [Suspect]
     Active Substance: CERTOLIZUMAB PEGOL
     Route: 058
  302. CERTOLIZUMAB PEGOL [Suspect]
     Active Substance: CERTOLIZUMAB PEGOL
     Dosage: 400 MG, MONTHLY
     Route: 058
  303. CERTOLIZUMAB PEGOL [Suspect]
     Active Substance: CERTOLIZUMAB PEGOL
     Route: 058
  304. CERTOLIZUMAB PEGOL [Suspect]
     Active Substance: CERTOLIZUMAB PEGOL
  305. CERTOLIZUMAB PEGOL [Suspect]
     Active Substance: CERTOLIZUMAB PEGOL
     Route: 058
  306. CERTOLIZUMAB PEGOL [Suspect]
     Active Substance: CERTOLIZUMAB PEGOL
     Route: 058
  307. CERTOLIZUMAB PEGOL [Suspect]
     Active Substance: CERTOLIZUMAB PEGOL
     Route: 065
  308. CETRIMIDE\CHLORHEXIDINE [Suspect]
     Active Substance: CETRIMIDE\CHLORHEXIDINE
  309. CETRIMONIUM BROMIDE [Suspect]
     Active Substance: CETRIMONIUM BROMIDE
  310. CHLORAPREP [Suspect]
     Active Substance: CHLORHEXIDINE GLUCONATE\ISOPROPYL ALCOHOL
  311. CHLORAPREP [Suspect]
     Active Substance: CHLORHEXIDINE GLUCONATE\ISOPROPYL ALCOHOL
     Route: 061
  312. CHLORAPREP [Suspect]
     Active Substance: CHLORHEXIDINE GLUCONATE\ISOPROPYL ALCOHOL
     Route: 048
  313. CHLORHEXIDINE ACETATE [Suspect]
     Active Substance: CHLORHEXIDINE ACETATE
  314. CHLORHEXIDINE GLUCONATE\ISOPROPYL ALCOHOL [Suspect]
     Active Substance: CHLORHEXIDINE GLUCONATE\ISOPROPYL ALCOHOL
  315. CHLORHEXIDINE GLUCONATE\ISOPROPYL ALCOHOL [Suspect]
     Active Substance: CHLORHEXIDINE GLUCONATE\ISOPROPYL ALCOHOL
  316. CHLORHEXIDINE GLUCONATE\ISOPROPYL ALCOHOL [Suspect]
     Active Substance: CHLORHEXIDINE GLUCONATE\ISOPROPYL ALCOHOL
     Route: 048
  317. CHLORHEXIDINE GLUCONATE\ISOPROPYL ALCOHOL [Suspect]
     Active Substance: CHLORHEXIDINE GLUCONATE\ISOPROPYL ALCOHOL
     Route: 002
  318. CLONIDINE [Suspect]
     Active Substance: CLONIDINE
  319. CODEINE [Suspect]
     Active Substance: CODEINE
  320. CORTISONE ACETATE [Suspect]
     Active Substance: CORTISONE ACETATE
     Indication: Rheumatoid arthritis
     Route: 061
  321. CORTISONE ACETATE [Suspect]
     Active Substance: CORTISONE ACETATE
  322. CORTISONE ACETATE [Suspect]
     Active Substance: CORTISONE ACETATE
  323. CORTISONE ACETATE [Suspect]
     Active Substance: CORTISONE ACETATE
  324. CORTISONE ACETATE [Suspect]
     Active Substance: CORTISONE ACETATE
     Route: 061
  325. CORTISONE ACETATE [Suspect]
     Active Substance: CORTISONE ACETATE
     Route: 048
  326. CORTISONE ACETATE [Suspect]
     Active Substance: CORTISONE ACETATE
  327. CORTISONE ACETATE [Suspect]
     Active Substance: CORTISONE ACETATE
     Route: 048
  328. CORTISONE ACETATE [Suspect]
     Active Substance: CORTISONE ACETATE
     Route: 061
  329. CORTISONE ACETATE [Suspect]
     Active Substance: CORTISONE ACETATE
  330. CORTISONE ACETATE [Suspect]
     Active Substance: CORTISONE ACETATE
     Route: 061
  331. CORTISONE ACETATE [Suspect]
     Active Substance: CORTISONE ACETATE
  332. CORTISONE ACETATE [Suspect]
     Active Substance: CORTISONE ACETATE
     Route: 048
  333. CORTISONE ACETATE [Suspect]
     Active Substance: CORTISONE ACETATE
     Route: 058
  334. COSENTYX [Suspect]
     Active Substance: SECUKINUMAB
     Indication: Rheumatoid arthritis
     Route: 067
  335. COSENTYX [Suspect]
     Active Substance: SECUKINUMAB
     Indication: Psoriatic arthropathy
  336. COSENTYX [Suspect]
     Active Substance: SECUKINUMAB
     Route: 040
  337. COSENTYX [Suspect]
     Active Substance: SECUKINUMAB
     Route: 065
  338. CIMZIA [Suspect]
     Active Substance: CERTOLIZUMAB PEGOL
     Indication: Psoriasis
     Route: 058
  339. CIMZIA [Suspect]
     Active Substance: CERTOLIZUMAB PEGOL
     Indication: Rheumatoid arthritis
     Route: 058
  340. CIMZIA [Suspect]
     Active Substance: CERTOLIZUMAB PEGOL
  341. CIMZIA [Suspect]
     Active Substance: CERTOLIZUMAB PEGOL
     Route: 058
  342. CIMZIA [Suspect]
     Active Substance: CERTOLIZUMAB PEGOL
  343. CIMZIA [Suspect]
     Active Substance: CERTOLIZUMAB PEGOL
     Route: 058
  344. CIMZIA [Suspect]
     Active Substance: CERTOLIZUMAB PEGOL
     Route: 065
  345. CIMZIA [Suspect]
     Active Substance: CERTOLIZUMAB PEGOL
     Route: 016
  346. CIMZIA [Suspect]
     Active Substance: CERTOLIZUMAB PEGOL
     Route: 065
  347. DESOXIMETASONE [Suspect]
     Active Substance: DESOXIMETASONE
     Indication: Rheumatoid arthritis
     Dosage: 25 MILLIGRAM, WEEKLY
     Route: 048
  348. DESOXIMETASONE [Suspect]
     Active Substance: DESOXIMETASONE
     Route: 065
  349. DESOXIMETASONE [Suspect]
     Active Substance: DESOXIMETASONE
     Route: 061
  350. DESOXIMETASONE [Suspect]
     Active Substance: DESOXIMETASONE
     Route: 048
  351. DESOXIMETASONE [Suspect]
     Active Substance: DESOXIMETASONE
     Route: 058
  352. DESOXIMETASONE [Suspect]
     Active Substance: DESOXIMETASONE
     Route: 048
  353. DESOXIMETASONE [Suspect]
     Active Substance: DESOXIMETASONE
     Route: 016
  354. DESOXIMETASONE [Suspect]
     Active Substance: DESOXIMETASONE
     Route: 058
  355. DESOXIMETASONE [Suspect]
     Active Substance: DESOXIMETASONE
     Route: 065
  356. DESOXIMETASONE [Suspect]
     Active Substance: DESOXIMETASONE
     Route: 048
  357. DESOXIMETASONE [Suspect]
     Active Substance: DESOXIMETASONE
     Route: 003
  358. DICLOFENAC [Suspect]
     Active Substance: DICLOFENAC
  359. DIPHENHYDRAMINE HYDROCHLORIDE [Suspect]
     Active Substance: DIPHENHYDRAMINE HYDROCHLORIDE
  360. DOMPERIDONE MALEATE [Suspect]
     Active Substance: DOMPERIDONE MALEATE
  361. EMEND [Suspect]
     Active Substance: APREPITANT
     Indication: Rheumatoid arthritis
     Route: 048
  362. EMEND [Suspect]
     Active Substance: APREPITANT
     Route: 065
  363. SULFISOMIDINE [Suspect]
     Active Substance: SULFISOMIDINE
  364. SULFISOMIDINE SODIUM [Suspect]
     Active Substance: SULFISOMIDINE SODIUM
  365. ENTYVIO [Suspect]
     Active Substance: VEDOLIZUMAB
  366. ERELZI [Suspect]
     Active Substance: ETANERCEPT-SZZS
     Indication: Rheumatoid arthritis
     Dosage: 50 MG, QW
     Route: 058
  367. ERELZI [Suspect]
     Active Substance: ETANERCEPT-SZZS
     Route: 058
  368. ERELZI [Suspect]
     Active Substance: ETANERCEPT-SZZS
     Route: 058
  369. ERELZI [Suspect]
     Active Substance: ETANERCEPT-SZZS
  370. ERELZI [Suspect]
     Active Substance: ETANERCEPT-SZZS
     Route: 058
  371. ERELZI [Suspect]
     Active Substance: ETANERCEPT-SZZS
     Dosage: 50 MG, WEEKLY
     Route: 065
  372. ERELZI [Suspect]
     Active Substance: ETANERCEPT-SZZS
     Route: 065
  373. ERELZI [Suspect]
     Active Substance: ETANERCEPT-SZZS
     Route: 058
  374. ERELZI [Suspect]
     Active Substance: ETANERCEPT-SZZS
     Route: 058
  375. ERELZI [Suspect]
     Active Substance: ETANERCEPT-SZZS
  376. ERELZI [Suspect]
     Active Substance: ETANERCEPT-SZZS
     Dosage: 20 MILLIGRAM, QWK
     Route: 058
  377. IRON\VITAMINS [Suspect]
     Active Substance: IRON\VITAMINS
  378. FOLIC ACID [Suspect]
     Active Substance: FOLIC ACID
     Indication: Rheumatoid arthritis
     Route: 065
  379. FOLIC ACID [Suspect]
     Active Substance: FOLIC ACID
     Route: 058
  380. FOLIC ACID [Suspect]
     Active Substance: FOLIC ACID
     Route: 048
  381. FOLIC ACID [Suspect]
     Active Substance: FOLIC ACID
  382. FOLIC ACID [Suspect]
     Active Substance: FOLIC ACID
  383. FOLIC ACID [Suspect]
     Active Substance: FOLIC ACID
  384. FOLIC ACID [Suspect]
     Active Substance: FOLIC ACID
  385. FOLIC ACID [Suspect]
     Active Substance: FOLIC ACID
  386. FOLIC ACID [Suspect]
     Active Substance: FOLIC ACID
  387. FOLIC ACID [Suspect]
     Active Substance: FOLIC ACID
  388. FOLIC ACID [Suspect]
     Active Substance: FOLIC ACID
  389. FOLIC ACID [Suspect]
     Active Substance: FOLIC ACID
  390. FOLIC ACID [Suspect]
     Active Substance: FOLIC ACID
  391. FOLIC ACID [Suspect]
     Active Substance: FOLIC ACID
  392. FOLIC ACID [Suspect]
     Active Substance: FOLIC ACID
  393. FOLIC ACID [Suspect]
     Active Substance: FOLIC ACID
     Route: 048
  394. FOLIC ACID [Suspect]
     Active Substance: FOLIC ACID
     Route: 048
  395. FOLIC ACID [Suspect]
     Active Substance: FOLIC ACID
     Route: 016
  396. FOLIC ACID [Suspect]
     Active Substance: FOLIC ACID
     Route: 048
  397. FOLIC ACID [Suspect]
     Active Substance: FOLIC ACID
  398. FOLIC ACID [Suspect]
     Active Substance: FOLIC ACID
  399. FOLIC ACID [Suspect]
     Active Substance: FOLIC ACID
     Route: 058
  400. FOLIC ACID [Suspect]
     Active Substance: FOLIC ACID
     Route: 058
  401. FOLIC ACID [Suspect]
     Active Substance: FOLIC ACID
     Route: 058
  402. FOLIC ACID [Suspect]
     Active Substance: FOLIC ACID
     Route: 065
  403. FOLIC ACID [Suspect]
     Active Substance: FOLIC ACID
     Route: 042
  404. FOLIC ACID [Suspect]
     Active Substance: FOLIC ACID
     Route: 065
  405. FOLIC ACID [Suspect]
     Active Substance: FOLIC ACID
     Route: 065
  406. FOLIC ACID [Suspect]
     Active Substance: FOLIC ACID
     Route: 042
  407. FOLIC ACID [Suspect]
     Active Substance: FOLIC ACID
     Route: 065
  408. FOSAMAX [Suspect]
     Active Substance: ALENDRONATE SODIUM
     Indication: Rheumatoid arthritis
     Route: 048
  409. FOSAMAX [Suspect]
     Active Substance: ALENDRONATE SODIUM
     Route: 048
  410. FOSAMAX [Suspect]
     Active Substance: ALENDRONATE SODIUM
  411. FOSAMAX [Suspect]
     Active Substance: ALENDRONATE SODIUM
     Route: 048
  412. FOSAMAX [Suspect]
     Active Substance: ALENDRONATE SODIUM
     Route: 016
  413. FRAMYCETIN SULFATE\SODIUM PROPIONATE [Suspect]
     Active Substance: FRAMYCETIN SULFATE\SODIUM PROPIONATE
  414. FLUMETHASONE PIVALATE [Suspect]
     Active Substance: FLUMETHASONE PIVALATE
     Indication: Rheumatoid arthritis
     Route: 058
  415. FLUMETHASONE PIVALATE [Suspect]
     Active Substance: FLUMETHASONE PIVALATE
     Route: 065
  416. FLUMETHASONE PIVALATE [Suspect]
     Active Substance: FLUMETHASONE PIVALATE
     Route: 058
  417. HAIR KERATIN AMINO ACIDS GOLD COMPLEX [Suspect]
     Active Substance: HAIR KERATIN AMINO ACIDS GOLD COMPLEX
  418. GOLIMUMAB [Suspect]
     Active Substance: GOLIMUMAB
     Indication: Prostatic specific antigen
  419. GOLIMUMAB [Suspect]
     Active Substance: GOLIMUMAB
     Indication: Rheumatoid arthritis
     Route: 058
  420. GOLIMUMAB [Suspect]
     Active Substance: GOLIMUMAB
     Route: 058
  421. GOLIMUMAB [Suspect]
     Active Substance: GOLIMUMAB
     Route: 058
  422. GRAMICIDIN\NEOMYCIN SULFATE [Suspect]
     Active Substance: GRAMICIDIN\NEOMYCIN SULFATE
  423. HUMIRA [Suspect]
     Active Substance: ADALIMUMAB
     Indication: Rheumatoid arthritis
     Route: 058
  424. HUMIRA [Suspect]
     Active Substance: ADALIMUMAB
     Indication: Psoriatic arthropathy
  425. HUMIRA [Suspect]
     Active Substance: ADALIMUMAB
     Route: 058
  426. HUMIRA [Suspect]
     Active Substance: ADALIMUMAB
  427. HUMIRA [Suspect]
     Active Substance: ADALIMUMAB
     Route: 058
  428. HUMIRA [Suspect]
     Active Substance: ADALIMUMAB
  429. HUMIRA [Suspect]
     Active Substance: ADALIMUMAB
     Route: 058
  430. HUMIRA [Suspect]
     Active Substance: ADALIMUMAB
     Route: 058
  431. HUMIRA [Suspect]
     Active Substance: ADALIMUMAB
     Route: 058
  432. HUMIRA [Suspect]
     Active Substance: ADALIMUMAB
     Route: 058
  433. HUMIRA [Suspect]
     Active Substance: ADALIMUMAB
     Route: 048
  434. HUMIRA [Suspect]
     Active Substance: ADALIMUMAB
     Route: 058
  435. HYALURONIDASE (HUMAN RECOMBINANT) [Suspect]
     Active Substance: HYALURONIDASE (HUMAN RECOMBINANT)
     Indication: Rheumatoid arthritis
     Route: 058
  436. HYALURONIDASE (HUMAN RECOMBINANT) [Suspect]
     Active Substance: HYALURONIDASE (HUMAN RECOMBINANT)
     Route: 042
  437. HYDROCORTISONE PROBUTATE [Suspect]
     Active Substance: HYDROCORTISONE PROBUTATE
  438. HYDROXYCHLOROQUINE [Suspect]
     Active Substance: HYDROXYCHLOROQUINE
     Indication: Rheumatoid arthritis
     Route: 048
  439. HYDROXYCHLOROQUINE [Suspect]
     Active Substance: HYDROXYCHLOROQUINE
  440. HYDROXYCHLOROQUINE [Suspect]
     Active Substance: HYDROXYCHLOROQUINE
     Route: 048
  441. HYDROXYCHLOROQUINE [Suspect]
     Active Substance: HYDROXYCHLOROQUINE
  442. HYDROXYCHLOROQUINE [Suspect]
     Active Substance: HYDROXYCHLOROQUINE
     Route: 048
  443. HYDROXYCHLOROQUINE [Suspect]
     Active Substance: HYDROXYCHLOROQUINE
     Route: 066
  444. HYDROXYCHLOROQUINE [Suspect]
     Active Substance: HYDROXYCHLOROQUINE
     Route: 066
  445. HYDROXYCHLOROQUINE [Suspect]
     Active Substance: HYDROXYCHLOROQUINE
  446. HYDROXYCHLOROQUINE [Suspect]
     Active Substance: HYDROXYCHLOROQUINE
  447. HYDROXYCHLOROQUINE [Suspect]
     Active Substance: HYDROXYCHLOROQUINE
  448. HYDROXYCHLOROQUINE [Suspect]
     Active Substance: HYDROXYCHLOROQUINE
     Route: 048
  449. HYDROXYCHLOROQUINE [Suspect]
     Active Substance: HYDROXYCHLOROQUINE
     Route: 016
  450. HYDROXYCHLOROQUINE [Suspect]
     Active Substance: HYDROXYCHLOROQUINE
     Route: 058
  451. HYDROXYCHLOROQUINE [Suspect]
     Active Substance: HYDROXYCHLOROQUINE
     Route: 048
  452. HYDROXYCHLOROQUINE [Suspect]
     Active Substance: HYDROXYCHLOROQUINE
  453. HYDROXYCHLOROQUINE [Suspect]
     Active Substance: HYDROXYCHLOROQUINE
     Route: 065
  454. HYDROXYCHLOROQUINE [Suspect]
     Active Substance: HYDROXYCHLOROQUINE
     Route: 048
  455. HYDROXYCHLOROQUINE [Suspect]
     Active Substance: HYDROXYCHLOROQUINE
     Route: 065
  456. HYDROXYCHLOROQUINE [Suspect]
     Active Substance: HYDROXYCHLOROQUINE
     Route: 065
  457. HYDROXYCHLOROQUINE [Suspect]
     Active Substance: HYDROXYCHLOROQUINE
     Route: 065
  458. HYDROXYCHLOROQUINE [Suspect]
     Active Substance: HYDROXYCHLOROQUINE
     Route: 065
  459. ISOPROPYL ALCOHOL [Suspect]
     Active Substance: ISOPROPYL ALCOHOL
     Route: 061
  460. ISOPROPYL ALCOHOL [Suspect]
     Active Substance: ISOPROPYL ALCOHOL
     Route: 048
  461. KEVZARA [Suspect]
     Active Substance: SARILUMAB
     Indication: Rheumatoid arthritis
  462. LAMICTAL [Suspect]
     Active Substance: LAMOTRIGINE
     Indication: Product used for unknown indication
     Route: 048
  463. MYRBETRIQ [Suspect]
     Active Substance: MIRABEGRON
  464. LEFLUNOMIDE [Suspect]
     Active Substance: LEFLUNOMIDE
     Indication: Rheumatoid arthritis
     Route: 048
  465. LEFLUNOMIDE [Suspect]
     Active Substance: LEFLUNOMIDE
  466. LEFLUNOMIDE [Suspect]
     Active Substance: LEFLUNOMIDE
  467. LEFLUNOMIDE [Suspect]
     Active Substance: LEFLUNOMIDE
     Route: 048
  468. LEFLUNOMIDE [Suspect]
     Active Substance: LEFLUNOMIDE
     Route: 048
  469. LEFLUNOMIDE [Suspect]
     Active Substance: LEFLUNOMIDE
     Route: 048
  470. LEFLUNOMIDE [Suspect]
     Active Substance: LEFLUNOMIDE
     Route: 048
  471. LEFLUNOMIDE [Suspect]
     Active Substance: LEFLUNOMIDE
  472. LEFLUNOMIDE [Suspect]
     Active Substance: LEFLUNOMIDE
     Route: 048
  473. FLUMETHASONE PIVALATE [Suspect]
     Active Substance: FLUMETHASONE PIVALATE
     Indication: Rheumatoid arthritis
     Route: 058
  474. FLUMETHASONE PIVALATE [Suspect]
     Active Substance: FLUMETHASONE PIVALATE
  475. MAGNESIUM [Suspect]
     Active Substance: MAGNESIUM
     Route: 065
  476. MEGLUMINE [Suspect]
     Active Substance: MEGLUMINE
     Indication: Migraine
     Route: 065
  477. MESALAMINE [Suspect]
     Active Substance: MESALAMINE
  478. METFORMIN HYDROCHLORIDE [Suspect]
     Active Substance: METFORMIN HYDROCHLORIDE
     Indication: Migraine
  479. MINOCYCLINE [Suspect]
     Active Substance: MINOCYCLINE HYDROCHLORIDE
  480. MYCOPHENOLATE MOFETIL [Suspect]
     Active Substance: MYCOPHENOLATE MOFETIL
  481. MYOCHRYSINE [Suspect]
     Active Substance: GOLD SODIUM THIOMALATE
  482. NAPROXEN SODIUM [Suspect]
     Active Substance: NAPROXEN SODIUM
     Indication: Rheumatoid arthritis
  483. NAPROXEN SODIUM [Suspect]
     Active Substance: NAPROXEN SODIUM
     Route: 065
  484. NAPROXEN SODIUM [Suspect]
     Active Substance: NAPROXEN SODIUM
  485. NITROFURAZONE [Suspect]
     Active Substance: NITROFURAZONE
  486. NUCALA [Suspect]
     Active Substance: MEPOLIZUMAB
  487. ORENCIA [Suspect]
     Active Substance: ABATACEPT
     Indication: Rheumatoid arthritis
  488. ORENCIA [Suspect]
     Active Substance: ABATACEPT
     Route: 058
  489. ORENCIA [Suspect]
     Active Substance: ABATACEPT
     Route: 042
  490. ORENCIA [Suspect]
     Active Substance: ABATACEPT
     Route: 048
  491. ORENCIA [Suspect]
     Active Substance: ABATACEPT
     Route: 058
  492. ORENCIA [Suspect]
     Active Substance: ABATACEPT
     Route: 042
  493. ORENCIA [Suspect]
     Active Substance: ABATACEPT
     Route: 058
  494. ORENCIA [Suspect]
     Active Substance: ABATACEPT
     Dosage: 125 MG, WEEKLY
     Route: 058
  495. ORENCIA [Suspect]
     Active Substance: ABATACEPT
     Route: 058
  496. ORENCIA [Suspect]
     Active Substance: ABATACEPT
     Route: 042
  497. ORENCIA [Suspect]
     Active Substance: ABATACEPT
     Dosage: 125 MG, WEEKLY
     Route: 042
  498. ORENCIA [Suspect]
     Active Substance: ABATACEPT
  499. ORENCIA [Suspect]
     Active Substance: ABATACEPT
     Route: 041
  500. ORENCIA [Suspect]
     Active Substance: ABATACEPT
     Route: 065
  501. ORENCIA [Suspect]
     Active Substance: ABATACEPT
     Route: 065
  502. ORENCIA [Suspect]
     Active Substance: ABATACEPT
     Route: 013
  503. ORENCIA [Suspect]
     Active Substance: ABATACEPT
  504. ORENCIA [Suspect]
     Active Substance: ABATACEPT
     Route: 065
  505. ORENCIA [Suspect]
     Active Substance: ABATACEPT
     Route: 058
  506. ORENCIA [Suspect]
     Active Substance: ABATACEPT
     Route: 065
  507. ORENCIA [Suspect]
     Active Substance: ABATACEPT
     Route: 042
  508. ORENCIA [Suspect]
     Active Substance: ABATACEPT
     Route: 065
  509. ORENCIA [Suspect]
     Active Substance: ABATACEPT
     Route: 065
  510. ORENCIA [Suspect]
     Active Substance: ABATACEPT
     Route: 058
  511. ORENCIA [Suspect]
     Active Substance: ABATACEPT
     Dosage: 125 MILLIGRAM, QWK
     Route: 058
  512. ORENCIA [Suspect]
     Active Substance: ABATACEPT
     Dosage: 125 MILLIGRAM, QWK
     Route: 058
  513. ORENCIA [Suspect]
     Active Substance: ABATACEPT
     Route: 042
  514. ORENCIA [Suspect]
     Active Substance: ABATACEPT
     Route: 058
  515. ORENCIA [Suspect]
     Active Substance: ABATACEPT
     Route: 065
  516. ORENCIA [Suspect]
     Active Substance: ABATACEPT
     Route: 065
  517. ORENCIA [Suspect]
     Active Substance: ABATACEPT
  518. ORENCIA [Suspect]
     Active Substance: ABATACEPT
     Route: 058
  519. OTEZLA [Suspect]
     Active Substance: APREMILAST
     Route: 048
  520. OTEZLA [Suspect]
     Active Substance: APREMILAST
  521. OTEZLA [Suspect]
     Active Substance: APREMILAST
  522. OTEZLA [Suspect]
     Active Substance: APREMILAST
  523. OTEZLA [Suspect]
     Active Substance: APREMILAST
     Route: 048
  524. OTEZLA [Suspect]
     Active Substance: APREMILAST
     Route: 048
  525. OXYCODONE [Suspect]
     Active Substance: OXYCODONE
  526. OXYCODONE [Suspect]
     Active Substance: OXYCODONE
     Route: 065
  527. PANTOPRAZOLE SODIUM ANHYDROUS [Suspect]
     Active Substance: PANTOPRAZOLE SODIUM ANHYDROUS
     Route: 016
  528. PANTOPRAZOLE SODIUM ANHYDROUS [Suspect]
     Active Substance: PANTOPRAZOLE SODIUM ANHYDROUS
  529. PANTOPRAZOLE SODIUM ANHYDROUS [Suspect]
     Active Substance: PANTOPRAZOLE SODIUM ANHYDROUS
     Route: 065
  530. PARA-AMINOSALICYLIC ACID [Suspect]
     Active Substance: AMINOSALICYLIC ACID
  531. PERIOGARD [Suspect]
     Active Substance: CHLORHEXIDINE GLUCONATE
  532. PERIOGARD [Suspect]
     Active Substance: CHLORHEXIDINE GLUCONATE
  533. PLAQUENIL [Suspect]
     Active Substance: HYDROXYCHLOROQUINE SULFATE
     Indication: Rheumatoid arthritis
     Dates: start: 2012
  534. PLAQUENIL [Suspect]
     Active Substance: HYDROXYCHLOROQUINE SULFATE
     Route: 048
  535. PLAQUENIL [Suspect]
     Active Substance: HYDROXYCHLOROQUINE SULFATE
     Route: 048
  536. PLAQUENIL [Suspect]
     Active Substance: HYDROXYCHLOROQUINE SULFATE
  537. PLAQUENIL [Suspect]
     Active Substance: HYDROXYCHLOROQUINE SULFATE
  538. PLAQUENIL [Suspect]
     Active Substance: HYDROXYCHLOROQUINE SULFATE
     Route: 048
  539. PLAQUENIL [Suspect]
     Active Substance: HYDROXYCHLOROQUINE SULFATE
  540. PLAQUENIL [Suspect]
     Active Substance: HYDROXYCHLOROQUINE SULFATE
     Route: 048
  541. PLAQUENIL [Suspect]
     Active Substance: HYDROXYCHLOROQUINE SULFATE
  542. PLAQUENIL [Suspect]
     Active Substance: HYDROXYCHLOROQUINE SULFATE
     Route: 048
  543. PSEUDOEPHEDRINE [Suspect]
     Active Substance: PSEUDOEPHEDRINE
     Indication: Rheumatoid arthritis
  544. PSEUDOEPHEDRINE [Suspect]
     Active Substance: PSEUDOEPHEDRINE
  545. QUETIAPINE FUMARATE [Suspect]
     Active Substance: QUETIAPINE FUMARATE
     Route: 048
  546. QUETIAPINE FUMARATE [Suspect]
     Active Substance: QUETIAPINE FUMARATE
  547. QUETIAPINE FUMARATE [Suspect]
     Active Substance: QUETIAPINE FUMARATE
     Route: 048
  548. QUETIAPINE FUMARATE [Suspect]
     Active Substance: QUETIAPINE FUMARATE
  549. RAMIPRIL [Suspect]
     Active Substance: RAMIPRIL
     Indication: Rheumatoid arthritis
     Route: 042
  550. RAMIPRIL [Suspect]
     Active Substance: RAMIPRIL
     Route: 042
  551. RAMIPRIL [Suspect]
     Active Substance: RAMIPRIL
     Route: 065
  552. RAMIPRIL [Suspect]
     Active Substance: RAMIPRIL
     Route: 016
  553. RANITIDINE [Suspect]
     Active Substance: RANITIDINE
  554. CETIRIZINE HYDROCHLORIDE [Suspect]
     Active Substance: CETIRIZINE HYDROCHLORIDE
     Indication: Rheumatoid arthritis
  555. CETIRIZINE HYDROCHLORIDE\PSEUDOEPHEDRINE HYDROCHLORIDE [Suspect]
     Active Substance: CETIRIZINE HYDROCHLORIDE\PSEUDOEPHEDRINE HYDROCHLORIDE
     Indication: Rheumatoid arthritis
  556. CETIRIZINE HYDROCHLORIDE\PSEUDOEPHEDRINE HYDROCHLORIDE [Suspect]
     Active Substance: CETIRIZINE HYDROCHLORIDE\PSEUDOEPHEDRINE HYDROCHLORIDE
  557. CETIRIZINE HYDROCHLORIDE\PSEUDOEPHEDRINE HYDROCHLORIDE [Suspect]
     Active Substance: CETIRIZINE HYDROCHLORIDE\PSEUDOEPHEDRINE HYDROCHLORIDE
     Route: 065
  558. CETIRIZINE HYDROCHLORIDE [Suspect]
     Active Substance: CETIRIZINE HYDROCHLORIDE
     Indication: Rheumatoid arthritis
  559. CETIRIZINE HYDROCHLORIDE [Suspect]
     Active Substance: CETIRIZINE HYDROCHLORIDE
  560. CETIRIZINE HYDROCHLORIDE [Suspect]
     Active Substance: CETIRIZINE HYDROCHLORIDE
     Route: 048
  561. CETIRIZINE HYDROCHLORIDE [Suspect]
     Active Substance: CETIRIZINE HYDROCHLORIDE
  562. REMICADE [Suspect]
     Active Substance: INFLIXIMAB
     Indication: Colitis ulcerative
     Route: 042
  563. REMICADE [Suspect]
     Active Substance: INFLIXIMAB
     Indication: Rheumatoid arthritis
     Route: 058
  564. REMICADE [Suspect]
     Active Substance: INFLIXIMAB
     Route: 042
  565. REMICADE [Suspect]
     Active Substance: INFLIXIMAB
  566. REMICADE [Suspect]
     Active Substance: INFLIXIMAB
     Route: 040
  567. RITUXAN [Suspect]
     Active Substance: RITUXIMAB
     Indication: Rheumatoid arthritis
     Route: 042
  568. RITUXIMAB [Suspect]
     Active Substance: RITUXIMAB
     Indication: Rheumatoid arthritis
     Route: 042
  569. RITUXIMAB [Suspect]
     Active Substance: RITUXIMAB
     Route: 042
  570. RITUXIMAB [Suspect]
     Active Substance: RITUXIMAB
     Route: 065
  571. RITUXIMAB [Suspect]
     Active Substance: RITUXIMAB
     Route: 042
  572. RITUXIMAB [Suspect]
     Active Substance: RITUXIMAB
     Route: 048
  573. RITUXIMAB [Suspect]
     Active Substance: RITUXIMAB
     Route: 042
  574. RITUXIMAB [Suspect]
     Active Substance: RITUXIMAB
     Route: 058
  575. RITUXIMAB [Suspect]
     Active Substance: RITUXIMAB
     Route: 042
  576. RITUXIMAB [Suspect]
     Active Substance: RITUXIMAB
     Route: 058
  577. RITUXIMAB [Suspect]
     Active Substance: RITUXIMAB
     Route: 042
  578. RITUXIMAB [Suspect]
     Active Substance: RITUXIMAB
     Route: 042
  579. RITUXIMAB [Suspect]
     Active Substance: RITUXIMAB
     Route: 065
  580. HYALURONIDASE (HUMAN RECOMBINANT)\RITUXIMAB [Suspect]
     Active Substance: HYALURONIDASE (HUMAN RECOMBINANT)\RITUXIMAB
     Indication: Rheumatoid arthritis
     Route: 058
  581. HYALURONIDASE (HUMAN RECOMBINANT)\RITUXIMAB [Suspect]
     Active Substance: HYALURONIDASE (HUMAN RECOMBINANT)\RITUXIMAB
     Route: 042
  582. DIETARY SUPPLEMENT [Suspect]
     Active Substance: DIETARY SUPPLEMENT
  583. SARILUMAB [Suspect]
     Active Substance: SARILUMAB
     Indication: Rheumatoid arthritis
  584. SIMPONI [Suspect]
     Active Substance: GOLIMUMAB
     Indication: Rheumatoid arthritis
     Route: 058
  585. SIMPONI [Suspect]
     Active Substance: GOLIMUMAB
     Dosage: 50 MG, MONTHLY
     Route: 058
  586. SIMPONI [Suspect]
     Active Substance: GOLIMUMAB
     Route: 042
  587. SIMPONI [Suspect]
     Active Substance: GOLIMUMAB
  588. SIMPONI [Suspect]
     Active Substance: GOLIMUMAB
     Route: 052
  589. SIMPONI [Suspect]
     Active Substance: GOLIMUMAB
     Route: 058
  590. SIMPONI [Suspect]
     Active Substance: GOLIMUMAB
     Dosage: 50 MG, MONTHLY
  591. SIMPONI [Suspect]
     Active Substance: GOLIMUMAB
     Route: 065
  592. GOLD SODIUM THIOMALATE [Suspect]
     Active Substance: GOLD SODIUM THIOMALATE
     Indication: Rheumatoid arthritis
  593. GOLD SODIUM THIOMALATE [Suspect]
     Active Substance: GOLD SODIUM THIOMALATE
     Route: 065
  594. SODIUM FLUORIDE [Suspect]
     Active Substance: SODIUM FLUORIDE
  595. STELARA [Suspect]
     Active Substance: USTEKINUMAB
     Route: 058
  596. STELARA [Suspect]
     Active Substance: USTEKINUMAB
  597. STELARA [Suspect]
     Active Substance: USTEKINUMAB
     Route: 042
  598. STELARA [Suspect]
     Active Substance: USTEKINUMAB
     Route: 058
  599. STELARA [Suspect]
     Active Substance: USTEKINUMAB
     Route: 065
  600. STELARA [Suspect]
     Active Substance: USTEKINUMAB
     Route: 065
  601. SULFAMETHOXAZOLE AND TRIMETHOPRIM [Suspect]
     Active Substance: SULFAMETHOXAZOLE\TRIMETHOPRIM
  602. SULFAMETHOXAZOLE AND TRIMETHOPRIM [Suspect]
     Active Substance: SULFAMETHOXAZOLE\TRIMETHOPRIM
  603. SULFATHALIDINE [Suspect]
     Active Substance: PHTHALYLSULFATHIAZOLE
     Indication: Rheumatoid arthritis
  604. SULFATHALIDINE [Suspect]
     Active Substance: PHTHALYLSULFATHIAZOLE
  605. SULFATHALIDINE [Suspect]
     Active Substance: PHTHALYLSULFATHIAZOLE
     Route: 048
  606. SULFATHALIDINE [Suspect]
     Active Substance: PHTHALYLSULFATHIAZOLE
  607. SULFATHALIDINE [Suspect]
     Active Substance: PHTHALYLSULFATHIAZOLE
     Route: 048
  608. SULFATHALIDINE [Suspect]
     Active Substance: PHTHALYLSULFATHIAZOLE
     Route: 016
  609. SULFATHALIDINE [Suspect]
     Active Substance: PHTHALYLSULFATHIAZOLE
     Route: 016
  610. SULFATHALIDINE [Suspect]
     Active Substance: PHTHALYLSULFATHIAZOLE
     Route: 042
  611. SULFATHALIDINE [Suspect]
     Active Substance: PHTHALYLSULFATHIAZOLE
  612. SULFATHALIDINE [Suspect]
     Active Substance: PHTHALYLSULFATHIAZOLE
     Route: 048
  613. SULFATHALIDINE [Suspect]
     Active Substance: PHTHALYLSULFATHIAZOLE
     Route: 048
  614. SULFATHALIDINE [Suspect]
     Active Substance: PHTHALYLSULFATHIAZOLE
     Route: 048
  615. SULFATHALIDINE [Suspect]
     Active Substance: PHTHALYLSULFATHIAZOLE
     Route: 048
  616. SULFATHALIDINE [Suspect]
     Active Substance: PHTHALYLSULFATHIAZOLE
  617. SULFATHALIDINE [Suspect]
     Active Substance: PHTHALYLSULFATHIAZOLE
     Route: 048
  618. SULFATHALIDINE [Suspect]
     Active Substance: PHTHALYLSULFATHIAZOLE
     Route: 065
  619. SULFATHIAZOLE [Suspect]
     Active Substance: SULFATHIAZOLE
  620. THYMOL [Suspect]
     Active Substance: THYMOL
  621. TOCILIZUMAB [Suspect]
     Active Substance: TOCILIZUMAB
     Indication: Rheumatoid arthritis
     Route: 058
  622. TOCILIZUMAB [Suspect]
     Active Substance: TOCILIZUMAB
     Route: 042
  623. TOCILIZUMAB [Suspect]
     Active Substance: TOCILIZUMAB
     Route: 016
  624. TOCILIZUMAB [Suspect]
     Active Substance: TOCILIZUMAB
     Route: 058
  625. TOCILIZUMAB [Suspect]
     Active Substance: TOCILIZUMAB
  626. TOPAMAX [Suspect]
     Active Substance: TOPIRAMATE
     Indication: Migraine
     Route: 048
  627. TOPAMAX [Suspect]
     Active Substance: TOPIRAMATE
     Route: 048
  628. TOPAMAX [Suspect]
     Active Substance: TOPIRAMATE
     Route: 048
  629. TOPAMAX [Suspect]
     Active Substance: TOPIRAMATE
     Route: 065
  630. TOPAMAX [Suspect]
     Active Substance: TOPIRAMATE
     Route: 048
  631. TOPICORT [Suspect]
     Active Substance: DESOXIMETASONE
     Indication: Rheumatoid arthritis
     Route: 048
  632. TOPICORT [Suspect]
     Active Substance: DESOXIMETASONE
  633. TOPICORT [Suspect]
     Active Substance: DESOXIMETASONE
     Route: 058
  634. HYDROCORTISONE ACETATE [Suspect]
     Active Substance: HYDROCORTISONE ACETATE
     Indication: Rheumatoid arthritis
     Route: 061
  635. HYDROCORTISONE ACETATE [Suspect]
     Active Substance: HYDROCORTISONE ACETATE
     Route: 058
  636. HYDROCORTISONE ACETATE [Suspect]
     Active Substance: HYDROCORTISONE ACETATE
     Route: 048
  637. HYDROCORTISONE ACETATE [Suspect]
     Active Substance: HYDROCORTISONE ACETATE
  638. TOPIRAMATE [Suspect]
     Active Substance: TOPIRAMATE
     Indication: Migraine
     Route: 065
  639. TOPIRAMATE [Suspect]
     Active Substance: TOPIRAMATE
     Route: 065
  640. TOPIRAMATE [Suspect]
     Active Substance: TOPIRAMATE
     Route: 065
  641. TOPIRAMATE [Suspect]
     Active Substance: TOPIRAMATE
     Route: 065
  642. TOPIRAMATE [Suspect]
     Active Substance: TOPIRAMATE
     Route: 048
  643. TOPIRAMATE [Suspect]
     Active Substance: TOPIRAMATE
     Route: 048
  644. TOPIRAMATE [Suspect]
     Active Substance: TOPIRAMATE
     Route: 065
  645. TRAMADOL [Suspect]
     Active Substance: TRAMADOL
  646. DIETARY SUPPLEMENT\HERBALS [Suspect]
     Active Substance: DIETARY SUPPLEMENT\HERBALS
     Route: 048
  647. HYDROCORTISONE BUTYRATE [Suspect]
     Active Substance: HYDROCORTISONE BUTYRATE
     Indication: Rheumatoid arthritis
  648. DICLOFENAC SODIUM [Suspect]
     Active Substance: DICLOFENAC SODIUM
  649. NAPROXEN [Suspect]
     Active Substance: NAPROXEN
  650. GOLD [Suspect]
     Active Substance: GOLD
  651. CALCIUM CARBONATE\CHOLECALCIFEROL [Suspect]
     Active Substance: CALCIUM CARBONATE\CHOLECALCIFEROL
  652. ACETAMINOPHEN AND CODEINE [Suspect]
     Active Substance: ACETAMINOPHEN\CODEINE PHOSPHATE
  653. CETIRIZINE HYDROCHLORIDE [Suspect]
     Active Substance: CETIRIZINE HYDROCHLORIDE
     Indication: Rheumatoid arthritis
  654. CETIRIZINE HYDROCHLORIDE [Suspect]
     Active Substance: CETIRIZINE HYDROCHLORIDE
  655. TRIAMCINOLONE ACETONIDE [Suspect]
     Active Substance: TRIAMCINOLONE ACETONIDE
     Indication: Rheumatoid arthritis
     Route: 014
  656. DICLOFENAC DIETHYLAMINE [Suspect]
     Active Substance: DICLOFENAC DIETHYLAMINE
  657. DICLOFENAC DIETHYLAMINE [Suspect]
     Active Substance: DICLOFENAC DIETHYLAMINE
  658. PSEUDOEPHEDRINE HYDROCHLORIDE [Suspect]
     Active Substance: PSEUDOEPHEDRINE HYDROCHLORIDE
  659. CHLORHEXIDINE GLUCONATE [Suspect]
     Active Substance: CHLORHEXIDINE GLUCONATE
  660. HYDROXYCHLOROQUINE SULFATE [Suspect]
     Active Substance: HYDROXYCHLOROQUINE SULFATE
     Indication: Rheumatoid arthritis
  661. TRICLOSAN [Suspect]
     Active Substance: TRICLOSAN
  662. PHTHALYLSULFATHIAZOLE [Suspect]
     Active Substance: PHTHALYLSULFATHIAZOLE
     Indication: Rheumatoid arthritis
  663. PHTHALYLSULFATHIAZOLE [Suspect]
     Active Substance: PHTHALYLSULFATHIAZOLE
  664. POVIDONE-IODINE [Suspect]
     Active Substance: POVIDONE-IODINE
  665. GOLD SODIUM THIOMALATE [Suspect]
     Active Substance: GOLD SODIUM THIOMALATE
  666. BUTRANS [Suspect]
     Active Substance: BUPRENORPHINE
     Route: 065
  667. TYROTHRICIN [Suspect]
     Active Substance: TYROTHRICIN
  668. USTEKINUMAB [Suspect]
     Active Substance: USTEKINUMAB
     Route: 042
  669. USTEKINUMAB [Suspect]
     Active Substance: USTEKINUMAB
     Route: 058
  670. USTEKINUMAB [Suspect]
     Active Substance: USTEKINUMAB
     Route: 058
  671. USTEKINUMAB [Suspect]
     Active Substance: USTEKINUMAB
     Route: 042
  672. USTEKINUMAB [Suspect]
     Active Substance: USTEKINUMAB
     Route: 065
  673. USTEKINUMAB [Suspect]
     Active Substance: USTEKINUMAB
     Route: 042
  674. VITAMIN C [Suspect]
     Active Substance: ASCORBIC ACID
  675. VITAMIN C [Suspect]
     Active Substance: ASCORBIC ACID
     Route: 065
  676. VITAMIN D3 [Suspect]
     Active Substance: CHOLECALCIFEROL
  677. VITAMIN D3 [Suspect]
     Active Substance: CHOLECALCIFEROL
     Route: 016
  678. DICLOFENAC DIETHYLAMINE [Suspect]
     Active Substance: DICLOFENAC DIETHYLAMINE
  679. PREDNISONE [Suspect]
     Active Substance: PREDNISONE
     Indication: Rheumatoid arthritis
     Route: 048
  680. ZYRTEC-D [Suspect]
     Active Substance: CETIRIZINE HYDROCHLORIDE\PSEUDOEPHEDRINE HYDROCHLORIDE
  681. ACETAMINOPHEN\CODEINE PHOSPHATE [Suspect]
     Active Substance: ACETAMINOPHEN\CODEINE PHOSPHATE
     Indication: Rheumatoid arthritis
     Route: 065
  682. MARVELON [Suspect]
     Active Substance: DESOGESTREL\ETHINYL ESTRADIOL
     Route: 065
  683. AZULFIDINE [Suspect]
     Active Substance: SULFASALAZINE
  684. CALCIUM CARBONATE [Suspect]
     Active Substance: CALCIUM CARBONATE
     Route: 065
  685. CHLORHEXIDINE GLUCONATE\CLOTRIMAZOLE\ISOPROPYL ALCOHOL [Suspect]
     Active Substance: CHLORHEXIDINE GLUCONATE\CLOTRIMAZOLE\ISOPROPYL ALCOHOL
  686. IODINE [Suspect]
     Active Substance: IODINE
  687. DICLOFENAC DIETHYLAMINE [Suspect]
     Active Substance: DICLOFENAC DIETHYLAMINE
  688. METHYLCOBALAMIN [Suspect]
     Active Substance: METHYLCOBALAMIN
  689. LYSINE HYDROCHLORIDE [Suspect]
     Active Substance: LYSINE HYDROCHLORIDE
  690. CINRYZE [Suspect]
     Active Substance: HUMAN C1-ESTERASE INHIBITOR
  691. DEXPANTHENOL [Suspect]
     Active Substance: DEXPANTHENOL
  692. LANSOPRAZOLE [Suspect]
     Active Substance: LANSOPRAZOLE
  693. ASACOL [Suspect]
     Active Substance: MESALAMINE
     Route: 065
  694. APREMILAST [Suspect]
     Active Substance: APREMILAST
  695. APREMILAST [Suspect]
     Active Substance: APREMILAST
  696. TRIAMCINOLONE [Suspect]
     Active Substance: TRIAMCINOLONE
  697. FISH OIL [Concomitant]
     Active Substance: FISH OIL
  698. ACETAMINOPHEN\CAFFEINE\CODEINE PHOSPHATE [Concomitant]
     Active Substance: ACETAMINOPHEN\CAFFEINE\CODEINE PHOSPHATE
     Route: 065
  699. ATIVAN [Concomitant]
     Active Substance: LORAZEPAM
     Indication: Anxiety
  700. AZATHIOPRINE [Concomitant]
     Active Substance: AZATHIOPRINE
  701. CAFFEINE [Concomitant]
     Active Substance: CAFFEINE
  702. CAFFEINE [Concomitant]
     Active Substance: CAFFEINE
  703. CALCIUM GLUCONATE [Concomitant]
     Active Substance: CALCIUM GLUCONATE
  704. CYANOCOBALAMIN [Concomitant]
     Active Substance: CYANOCOBALAMIN
  705. DEXAMETHASONE [Concomitant]
     Active Substance: DEXAMETHASONE
  706. DICLOFENAC POTASSIUM [Concomitant]
     Active Substance: DICLOFENAC POTASSIUM
     Indication: Rheumatoid arthritis
     Route: 065
  707. DICLOFENAC POTASSIUM [Concomitant]
     Active Substance: DICLOFENAC POTASSIUM
     Route: 065
  708. DICLOFENAC POTASSIUM [Concomitant]
     Active Substance: DICLOFENAC POTASSIUM
     Route: 048
  709. ELBASVIR [Concomitant]
     Active Substance: ELBASVIR
  710. ERYTHROMYCIN [Concomitant]
     Active Substance: ERYTHROMYCIN
  711. ETHINYL ESTRADIOL [Concomitant]
     Active Substance: ETHINYL ESTRADIOL
  712. GLUCOSAMINE [Concomitant]
     Active Substance: GLUCOSAMINE
  713. GLUCOSAMINE [Concomitant]
     Active Substance: GLUCOSAMINE
  714. IBUPROFEN [Concomitant]
     Active Substance: IBUPROFEN
  715. LANSOPRAZOLE [Concomitant]
     Active Substance: LANSOPRAZOLE
  716. LANSOPRAZOLE [Concomitant]
     Active Substance: LANSOPRAZOLE
  717. LEVOTHYROXINE SODIUM [Concomitant]
     Active Substance: LEVOTHYROXINE SODIUM
     Indication: Product used for unknown indication
     Route: 065
  718. LISINOPRIL [Concomitant]
     Active Substance: LISINOPRIL
     Route: 065
  719. LISINOPRIL [Concomitant]
     Active Substance: LISINOPRIL
     Route: 065
  720. LISINOPRIL [Concomitant]
     Active Substance: LISINOPRIL
     Route: 048
  721. LORAZEPAM [Concomitant]
     Active Substance: LORAZEPAM
     Route: 065
  722. MORPHINE [Concomitant]
     Active Substance: MORPHINE
     Indication: Rheumatoid arthritis
     Route: 042
  723. MELOXICAM [Concomitant]
     Active Substance: MELOXICAM
     Route: 065
  724. PANTOPRAZOLE SODIUM [Concomitant]
     Active Substance: PANTOPRAZOLE SODIUM
  725. PANTOPRAZOLE SODIUM [Concomitant]
     Active Substance: PANTOPRAZOLE SODIUM
  726. PANTOPRAZOLE SODIUM [Concomitant]
     Active Substance: PANTOPRAZOLE SODIUM
  727. PIROXICAM [Concomitant]
     Active Substance: PIROXICAM
     Route: 065
  728. PREDNISOLONE [Concomitant]
     Active Substance: PREDNISOLONE
     Indication: Product used for unknown indication
     Route: 065
  729. PREVACID [Concomitant]
     Active Substance: LANSOPRAZOLE
     Route: 065
  730. PREVACID [Concomitant]
     Active Substance: LANSOPRAZOLE
     Route: 065
  731. QUETIAPINE [Concomitant]
     Active Substance: QUETIAPINE
     Route: 065
  732. QUETIAPINE [Concomitant]
     Active Substance: QUETIAPINE
     Route: 065
  733. QUETIAPINE [Concomitant]
     Active Substance: QUETIAPINE
     Route: 065
  734. QUETIAPINE [Concomitant]
     Active Substance: QUETIAPINE
     Route: 065
  735. RISEDRONATE SODIUM [Concomitant]
     Active Substance: RISEDRONATE SODIUM
     Route: 065
  736. TRIMETHOPRIM [Concomitant]
     Active Substance: TRIMETHOPRIM
  737. TYLENOL [Concomitant]
     Active Substance: ACETAMINOPHEN
  738. TYLENOL [Concomitant]
     Active Substance: ACETAMINOPHEN
  739. TYLENOL [Concomitant]
     Active Substance: ACETAMINOPHEN
  740. ALBUTEROL SULFATE [Concomitant]
     Active Substance: ALBUTEROL SULFATE
  741. ZESTRIL [Concomitant]
     Active Substance: LISINOPRIL
  742. ZOPICLONE [Concomitant]
     Active Substance: ZOPICLONE
  743. DOCONEXENT [Concomitant]
     Active Substance: DOCONEXENT
  744. ICOSAPENT [Concomitant]
     Active Substance: ICOSAPENT
  745. TEMAZEPAM [Concomitant]
     Active Substance: TEMAZEPAM
  746. CALCIUM GLUBIONATE [Concomitant]
     Active Substance: CALCIUM GLUBIONATE
  747. CALCIUM [Concomitant]
     Active Substance: CALCIUM

REACTIONS (49)
  - Hypercholesterolaemia [Fatal]
  - Crohn^s disease [Fatal]
  - Condition aggravated [Fatal]
  - Deep vein thrombosis postoperative [Fatal]
  - Delirium [Fatal]
  - Depression [Fatal]
  - Dislocation of vertebra [Fatal]
  - Duodenal ulcer perforation [Fatal]
  - Epilepsy [Fatal]
  - Helicobacter infection [Fatal]
  - Pneumonia [Fatal]
  - Maternal exposure during pregnancy [Fatal]
  - Neoplasm progression [Fatal]
  - Hepatic cirrhosis [Fatal]
  - Road traffic accident [Fatal]
  - Sleep disorder due to general medical condition, insomnia type [Fatal]
  - Feeling hot [Fatal]
  - Wound infection [Fatal]
  - Blepharospasm [Fatal]
  - Off label use [Fatal]
  - Drug ineffective [Fatal]
  - Hypertension [Fatal]
  - Fibromyalgia [Fatal]
  - Infusion related reaction [Fatal]
  - Lower limb fracture [Fatal]
  - Lupus vulgaris [Fatal]
  - Peripheral venous disease [Fatal]
  - Pemphigus [Fatal]
  - Pericarditis [Fatal]
  - Rheumatoid arthritis [Fatal]
  - Sciatica [Fatal]
  - Type 2 diabetes mellitus [Fatal]
  - Upper respiratory tract infection [Fatal]
  - Urticaria [Fatal]
  - Intentional product use issue [Fatal]
  - Psoriatic arthropathy [Fatal]
  - Overlap syndrome [Fatal]
  - Drug-induced liver injury [Fatal]
  - Contraindicated product administered [Fatal]
  - Osteoporosis [Fatal]
  - Incorrect route of product administration [Fatal]
  - Gastrooesophageal reflux disease [Fatal]
  - Systemic lupus erythematosus [Fatal]
  - Osteoarthritis [Fatal]
  - Drug hypersensitivity [Fatal]
  - Retinitis [Fatal]
  - Prescribed overdose [Not Recovered/Not Resolved]
  - Fatigue [Not Recovered/Not Resolved]
  - Coeliac disease [Unknown]
